FAERS Safety Report 12183187 (Version 2)
Quarter: 2016Q2

REPORT INFORMATION
  Report Type: Spontaneous
  Country: FR (occurrence: FR)
  Receive Date: 20160316
  Receipt Date: 20160502
  Transmission Date: 20160815
  Serious: Yes (Hospitalization)
  Sender: FDA-Public Use
  Company Number: FR-ASTELLAS-2016US009483

PATIENT
  Age: 9 Year

DRUGS (1)
  1. MODIGRAF [Suspect]
     Active Substance: TACROLIMUS
     Indication: TRANSPLANT
     Dosage: 0.5 MG, TWICE DAILY (IN THE MORNING AND EVENING)
     Route: 065

REACTIONS (2)
  - Hospitalisation [Unknown]
  - Intentional product misuse [Unknown]
